FAERS Safety Report 7609413-8 (Version None)
Quarter: 2011Q3

REPORT INFORMATION
  Report Type: 
  Country: None (occurrence: None)
  Receive Date: 20110713
  Receipt Date: 20110713
  Transmission Date: 20111222
  Serious: Yes (Disabling, Other)
  Sender: FDA-Public Use
  Company Number: None

PATIENT
  Age: 38 Year
  Sex: Female
  Weight: 68.2 kg

DRUGS (2)
  1. DYSPORT [Suspect]
     Indication: SKIN WRINKLING
     Dosage: 50 UNITS 1 CUTANEOUS
     Route: 003
     Dates: start: 20110201
  2. DYSPORT [Suspect]
     Indication: SKIN WRINKLING
     Dosage: 50 UNITS 1 CUTANEOUS
     Route: 003
     Dates: start: 20110611

REACTIONS (13)
  - ASTHENOPIA [None]
  - MUSCULOSKELETAL STIFFNESS [None]
  - MEMORY IMPAIRMENT [None]
  - DIZZINESS [None]
  - CONSTIPATION [None]
  - MIGRAINE [None]
  - FEELING OF BODY TEMPERATURE CHANGE [None]
  - SPEECH DISORDER [None]
  - VISION BLURRED [None]
  - MOTOR DYSFUNCTION [None]
  - MYDRIASIS [None]
  - GAIT DISTURBANCE [None]
  - IMPAIRED WORK ABILITY [None]
